FAERS Safety Report 10515487 (Version 1)
Quarter: 2014Q4

REPORT INFORMATION
  Report Type: Report from Study
  Country: CO (occurrence: None)
  Receive Date: 20141009
  Receipt Date: 20141009
  Transmission Date: 20150528
  Serious: Yes (Hospitalization, Other)
  Sender: FDA-Public Use
  Company Number: 2014-20420

PATIENT
  Age: 81 Year
  Sex: Male

DRUGS (7)
  1. OMPERAZOLE [Concomitant]
     Active Substance: OMEPRAZOLE
  2. METOPROLOL [Concomitant]
     Active Substance: METOPROLOL
  3. LOVASTATIN. [Concomitant]
     Active Substance: LOVASTATIN
  4. ATORVASTATIN [Concomitant]
     Active Substance: ATORVASTATIN
  5. LOVASTATIN. [Suspect]
     Active Substance: LOVASTATIN
  6. AMLODIPINE [Concomitant]
     Active Substance: AMLODIPINE BESYLATE
  7. EYLEA [Suspect]
     Active Substance: AFLIBERCEPT
     Indication: AGE-RELATED MACULAR DEGENERATION
     Dosage: Q1MON TOTAL OF 3 DOSES
     Dates: start: 20130510, end: 20130711

REACTIONS (4)
  - Weight decreased [None]
  - Fatigue [None]
  - Myocardial infarction [None]
  - Pulmonary oedema [None]

NARRATIVE: CASE EVENT DATE: 201311
